FAERS Safety Report 5671060-5 (Version None)
Quarter: 2008Q1

REPORT INFORMATION
  Report Type: 
  Country: None (occurrence: None)
  Receive Date: 20080317
  Receipt Date: 20080317
  Transmission Date: 20080703
  Serious: Yes (Life-Threatening, Hospitalization)
  Sender: FDA-Public Use
  Company Number: None

PATIENT
  Sex: Female
  Weight: 61.2356 kg

DRUGS (1)
  1. JUNEL FE 1.5/30 [Suspect]
     Indication: CONTRACEPTION
     Dosage: 1.5/30 AS DIRECTED ORAL
     Route: 048

REACTIONS (1)
  - PULMONARY EMBOLISM [None]
